FAERS Safety Report 24805554 (Version 1)
Quarter: 2025Q1

REPORT INFORMATION
  Report Type: Spontaneous
  Country: US (occurrence: None)
  Receive Date: 20250103
  Receipt Date: 20250103
  Transmission Date: 20250409
  Serious: Yes (Hospitalization)
  Sender: FDA-CTU
  Company Number: None

PATIENT
  Age: 50 Year
  Sex: Female
  Weight: 93.6 kg

DRUGS (2)
  1. TIRZEPATIDE [Suspect]
     Active Substance: TIRZEPATIDE
     Indication: Obesity
     Route: 058
     Dates: start: 20241031
  2. TIRZEPATIDE [Concomitant]
     Active Substance: TIRZEPATIDE
     Dates: start: 20241031

REACTIONS (2)
  - Weight increased [None]
  - Generalised oedema [None]

NARRATIVE: CASE EVENT DATE: 20250101
